FAERS Safety Report 24424336 (Version 1)
Quarter: 2024Q4

REPORT INFORMATION
  Report Type: Spontaneous
  Country: GB (occurrence: GB)
  Receive Date: 20241010
  Receipt Date: 20241010
  Transmission Date: 20250115
  Serious: Yes (Other)
  Sender: GLAXOSMITHKLINE
  Company Number: None

PATIENT

DRUGS (2)
  1. LAMICTAL [Suspect]
     Active Substance: LAMOTRIGINE
     Indication: Bipolar I disorder
     Dosage: 400 MG, QD (400 MG ONCE A DAY AT NIGHT)
     Route: 065
     Dates: end: 20240911
  2. PROZAC [Concomitant]
     Active Substance: FLUOXETINE HYDROCHLORIDE
     Indication: Bipolar I disorder
     Dosage: UNK
     Route: 065
     Dates: end: 20240911

REACTIONS (10)
  - Hypoaesthesia oral [Not Recovered/Not Resolved]
  - Headache [Recovered/Resolved]
  - Influenza like illness [Recovered/Resolved]
  - Rash [Recovered/Resolved]
  - Chest pain [Unknown]
  - Nausea [Unknown]
  - Diarrhoea [Unknown]
  - Disturbance in attention [Unknown]
  - Feeling abnormal [Unknown]
  - Panic attack [Unknown]

NARRATIVE: CASE EVENT DATE: 20240914
